FAERS Safety Report 14890280 (Version 1)
Quarter: 2018Q2

REPORT INFORMATION
  Report Type: Spontaneous
  Country: US (occurrence: US)
  Receive Date: 20180514
  Receipt Date: 20180514
  Transmission Date: 20180711
  Serious: No
  Sender: FDA-Public Use
  Company Number: US-PFIZER INC-2018193290

PATIENT
  Age: 78 Year
  Sex: Male

DRUGS (1)
  1. LYRICA [Suspect]
     Active Substance: PREGABALIN
     Indication: NEUROPATHY PERIPHERAL
     Dosage: 150 MG, 2X/DAY (IN THE MORNING AND AT NIGHT)
     Route: 048

REACTIONS (8)
  - Myalgia [Unknown]
  - Dizziness [Unknown]
  - Vision blurred [Unknown]
  - Headache [Unknown]
  - Fatigue [Unknown]
  - Muscular weakness [Unknown]
  - Somnolence [Unknown]
  - Diplopia [Unknown]
